FAERS Safety Report 5490576-8 (Version None)
Quarter: 2007Q4

REPORT INFORMATION
  Report Type: 
  Country: None (occurrence: None)
  Receive Date: 20071019
  Receipt Date: 20071010
  Transmission Date: 20080405
  Serious: Yes (Hospitalization)
  Sender: FDA-Public Use
  Company Number: US-JNJFOC-20071003324

PATIENT
  Sex: Female
  Weight: 99.79 kg

DRUGS (1)
  1. DURAGESIC-100 [Suspect]
     Indication: RHEUMATOID ARTHRITIS
     Route: 062

REACTIONS (4)
  - APPLICATION SITE RASH [None]
  - APPLICATION SITE VESICLES [None]
  - OEDEMA PERIPHERAL [None]
  - THROMBOSIS [None]
